FAERS Safety Report 22374566 (Version 1)
Quarter: 2023Q2

REPORT INFORMATION
  Report Type: Spontaneous
  Country: NL (occurrence: NL)
  Receive Date: 20230526
  Receipt Date: 20230526
  Transmission Date: 20230722
  Serious: Yes (Other)
  Sender: FDA-Public Use
  Company Number: None

PATIENT
  Sex: Female
  Weight: 80 kg

DRUGS (2)
  1. ACYCLOVIR [Suspect]
     Active Substance: ACYCLOVIR
     Indication: Varicella zoster virus infection
     Dosage: 8 HOURS, 10MG/KG
     Route: 065
     Dates: start: 20210915, end: 20210919
  2. CYCLOSPORINE [Suspect]
     Active Substance: CYCLOSPORINE
     Indication: Renal transplant
     Dosage: CAPSULE, 100 MG (MILLIGRAM), CAPSULE ZACHT 100MG / BRAND NAME NOT SPECIFIED
     Route: 065
     Dates: start: 20180915

REACTIONS (7)
  - Acute kidney injury [Recovered/Resolved]
  - Neurotoxicity [Recovered/Resolved]
  - Hallucination [Recovered/Resolved]
  - Speech disorder [Recovered/Resolved]
  - Balance disorder [Recovered/Resolved]
  - No adverse event [Unknown]
  - Off label use [Unknown]
